FAERS Safety Report 22297082 (Version 1)
Quarter: 2023Q2

REPORT INFORMATION
  Report Type: Spontaneous
  Country: CN (occurrence: CN)
  Receive Date: 20230509
  Receipt Date: 20230509
  Transmission Date: 20230722
  Serious: Yes (Death, Life-Threatening, Hospitalization, Other)
  Sender: FDA-Public Use
  Company Number: None

PATIENT
  Age: 32 Year
  Sex: Female

DRUGS (9)
  1. METHYLPREDNISOLONE [Suspect]
     Active Substance: METHYLPREDNISOLONE
     Indication: Gingival bleeding
     Dosage: 16 MG, ONCE PER DAY
     Dates: start: 2021, end: 2021
  2. METHYLPREDNISOLONE [Suspect]
     Active Substance: METHYLPREDNISOLONE
     Indication: Immune thrombocytopenia
     Dosage: 24 MG,  UNK
     Dates: start: 202101, end: 202103
  3. METHYLPREDNISOLONE [Suspect]
     Active Substance: METHYLPREDNISOLONE
     Indication: Ecchymosis
     Dosage: 80 MG,  UNK
     Dates: start: 20210422, end: 2021
  4. METHYLPREDNISOLONE [Suspect]
     Active Substance: METHYLPREDNISOLONE
     Dosage: 80 MG, ONCE PER DAY
     Dates: start: 202108, end: 2021
  5. PREDNISONE [Suspect]
     Active Substance: PREDNISONE
     Indication: Immune thrombocytopenia
     Dosage: 20 MG,  UNK
     Dates: start: 202011, end: 202101
  6. CYCLOSPORINE [Suspect]
     Active Substance: CYCLOSPORINE
     Indication: Immune thrombocytopenia
     Dosage: UNK,  UNK
     Route: 048
     Dates: start: 202101, end: 202103
  7. CYCLOSPORINE [Suspect]
     Active Substance: CYCLOSPORINE
     Dosage: 150 MG, 2 TIMES PER DAY
     Route: 048
     Dates: start: 20210906, end: 2021
  8. NORETHINDRONE [Suspect]
     Active Substance: NORETHINDRONE
     Indication: Vaginal haemorrhage
     Dosage: 5 G, 3 TIMES PER DAY
     Dates: start: 20210906
  9. ELTROMBOPAG [Concomitant]
     Active Substance: ELTROMBOPAG
     Indication: Immune thrombocytopenia
     Dosage: 25 MG, UNK
     Dates: start: 202108

REACTIONS (5)
  - Cerebral vasoconstriction [Fatal]
  - Hypernatraemia [Fatal]
  - Cerebral venous sinus thrombosis [Fatal]
  - Superior sagittal sinus thrombosis [Fatal]
  - Subarachnoid haemorrhage [Fatal]

NARRATIVE: CASE EVENT DATE: 20210101
